FAERS Safety Report 18136395 (Version 1)
Quarter: 2020Q3

REPORT INFORMATION
  Report Type: Spontaneous
  Country: CN (occurrence: CN)
  Receive Date: 20200811
  Receipt Date: 20200811
  Transmission Date: 20201103
  Serious: Yes (Death, Disabling, Other)
  Sender: FDA-Public Use
  Company Number: CN-ASTRAZENECA-2020SF00779

PATIENT
  Age: 28809 Day
  Sex: Male
  Weight: 50 kg

DRUGS (1)
  1. DURVALUMAB. [Suspect]
     Active Substance: DURVALUMAB
     Indication: LUNG NEOPLASM MALIGNANT
     Dosage: 500 MG EVERY 14 DAYS
     Route: 042
     Dates: start: 20200413, end: 20200526

REACTIONS (7)
  - Immune-mediated pneumonitis [Fatal]
  - Malignant neoplasm progression [Unknown]
  - Drug-induced liver injury [Unknown]
  - Jaundice cholestatic [Unknown]
  - Pulmonary fibrosis [Fatal]
  - Acute hepatic failure [Fatal]
  - Respiratory failure [Fatal]

NARRATIVE: CASE EVENT DATE: 20200724
